FAERS Safety Report 21184400 (Version 1)
Quarter: 2022Q3

REPORT INFORMATION
  Report Type: Spontaneous
  Country: HR (occurrence: HR)
  Receive Date: 20220808
  Receipt Date: 20220808
  Transmission Date: 20221027
  Serious: Yes (Hospitalization, Other)
  Sender: FDA-Public Use
  Company Number: HR-BRISTOL-MYERS SQUIBB COMPANY-2022-065549

PATIENT
  Age: 65 Year
  Sex: Male

DRUGS (12)
  1. OPDIVO [Suspect]
     Active Substance: NIVOLUMAB
     Indication: Renal cancer
     Dosage: 4 CYCLES
     Route: 042
     Dates: start: 20220128, end: 20220401
  2. OPDIVO [Suspect]
     Active Substance: NIVOLUMAB
     Indication: Metastatic renal cell carcinoma
     Dates: start: 20220128, end: 20220311
  3. OPDIVO [Suspect]
     Active Substance: NIVOLUMAB
     Dates: start: 20220128, end: 20220311
  4. OPDIVO [Suspect]
     Active Substance: NIVOLUMAB
     Dates: start: 20220411
  5. OPDIVO [Suspect]
     Active Substance: NIVOLUMAB
  6. YERVOY [Suspect]
     Active Substance: IPILIMUMAB
     Indication: Renal cancer
     Dosage: 4 CYCLES
     Route: 042
     Dates: start: 20220128, end: 20220401
  7. YERVOY [Suspect]
     Active Substance: IPILIMUMAB
     Indication: Metastatic renal cell carcinoma
     Dates: start: 20220401
  8. YERVOY [Suspect]
     Active Substance: IPILIMUMAB
     Dates: start: 20220128, end: 20220401
  9. ASPIRIN [Concomitant]
     Active Substance: ASPIRIN
  10. ATORVASTATIN [Concomitant]
     Active Substance: ATORVASTATIN
  11. BISOPROLOL FUMARATE\PERINDOPRIL ARGININE [Concomitant]
     Active Substance: BISOPROLOL FUMARATE\PERINDOPRIL ARGININE
  12. INDAPAMIDE [Concomitant]
     Active Substance: INDAPAMIDE

REACTIONS (7)
  - Rash [Unknown]
  - Pyrexia [Unknown]
  - Sepsis [Unknown]
  - Somnolence [Unknown]
  - Acute kidney injury [Recovering/Resolving]
  - Hypophysitis [Recovering/Resolving]
  - Hypothyroidism [Unknown]

NARRATIVE: CASE EVENT DATE: 20220227
